FAERS Safety Report 10746975 (Version 17)
Quarter: 2017Q3

REPORT INFORMATION
  Report Type: Report from Study
  Country: FI (occurrence: FI)
  Receive Date: 20150129
  Receipt Date: 20170808
  Transmission Date: 20171127
  Serious: Yes (Hospitalization, Other)
  Sender: FDA-Public Use
  Company Number: FI-ROCHE-1525472

PATIENT
  Age: 66 Year
  Sex: Male
  Weight: 93.2 kg

DRUGS (96)
  1. CYCLOPHOSPHAMIDE. [Suspect]
     Active Substance: CYCLOPHOSPHAMIDE
     Indication: CHRONIC LYMPHOCYTIC LEUKAEMIA
     Dosage: C1D1
     Route: 048
     Dates: start: 20150114, end: 20150114
  2. FLUDARABINE [Suspect]
     Active Substance: FLUDARABINE PHOSPHATE
     Dosage: C2D2
     Route: 048
     Dates: start: 20150225, end: 20150225
  3. FLUDARABINE [Suspect]
     Active Substance: FLUDARABINE PHOSPHATE
     Dosage: C4D1
     Route: 048
     Dates: start: 20150428, end: 20150428
  4. SOLU-MEDROL [Concomitant]
     Active Substance: METHYLPREDNISOLONE SODIUM SUCCINATE
     Dosage: TREATMENT FOR ADVERSE EVENT 1.
     Route: 042
     Dates: start: 20150114, end: 20150114
  5. SOLU-MEDROL [Concomitant]
     Active Substance: METHYLPREDNISOLONE SODIUM SUCCINATE
     Route: 042
     Dates: start: 20150204, end: 20150204
  6. PARATABS [Concomitant]
     Route: 048
     Dates: start: 20150428, end: 20150428
  7. PARATABS [Concomitant]
     Route: 048
     Dates: start: 20150623, end: 20150623
  8. HISTEC [Concomitant]
     Active Substance: CETIRIZINE HYDROCHLORIDE
     Route: 048
     Dates: start: 20150428, end: 20150428
  9. HISTEC [Concomitant]
     Active Substance: CETIRIZINE HYDROCHLORIDE
     Route: 048
     Dates: start: 20150623, end: 20150623
  10. COTRIM FORTE [Concomitant]
     Active Substance: SULFAMETHOXAZOLE\TRIMETHOPRIM
     Dosage: STRENGTH: 160/80MG
     Route: 048
     Dates: start: 20150109
  11. VALTREX [Concomitant]
     Active Substance: VALACYCLOVIR HYDROCHLORIDE
     Route: 065
     Dates: start: 20140901
  12. APURIN [Concomitant]
     Active Substance: ALLOPURINOL
     Route: 048
     Dates: start: 20150113
  13. ZOFRAN [Concomitant]
     Active Substance: ONDANSETRON HYDROCHLORIDE
     Route: 048
     Dates: start: 20150224, end: 20150224
  14. OBINUTUZUMAB. [Suspect]
     Active Substance: OBINUTUZUMAB
     Dosage: C3D1
     Route: 041
     Dates: start: 20150331, end: 20150331
  15. CYCLOPHOSPHAMIDE. [Suspect]
     Active Substance: CYCLOPHOSPHAMIDE
     Dosage: C1D3?LAST DOSE PRIOR TO EVENTS
     Route: 048
     Dates: start: 20150116, end: 20150116
  16. FLUDARABINE [Suspect]
     Active Substance: FLUDARABINE PHOSPHATE
     Indication: CHRONIC LYMPHOCYTIC LEUKAEMIA
     Dosage: C1D1
     Route: 048
     Dates: start: 20150114, end: 20150114
  17. FLUDARABINE [Suspect]
     Active Substance: FLUDARABINE PHOSPHATE
     Dosage: C1D3?LAST DOSE PRIOR TO EVENTS
     Route: 048
     Dates: start: 20150116, end: 20150116
  18. SOLU-MEDROL [Concomitant]
     Active Substance: METHYLPREDNISOLONE SODIUM SUCCINATE
     Route: 042
     Dates: start: 20150128, end: 20150128
  19. PARATABS [Concomitant]
     Route: 048
     Dates: start: 20150128, end: 20150128
  20. VALTREX [Concomitant]
     Active Substance: VALACYCLOVIR HYDROCHLORIDE
     Indication: PROPHYLAXIS
     Route: 048
     Dates: start: 20150109
  21. OBINUTUZUMAB. [Suspect]
     Active Substance: OBINUTUZUMAB
     Indication: CHRONIC LYMPHOCYTIC LEUKAEMIA
     Dosage: C1D1?REDUCED INFUSION RATE FOR INFUSION RELATED REACTION.?FREQUENCY: ON DAY 1,2,8 AND 15 OF CYCLE 1
     Route: 041
     Dates: start: 20150114, end: 20150114
  22. OBINUTUZUMAB. [Suspect]
     Active Substance: OBINUTUZUMAB
     Dosage: C1D8?DELAYED DUE TO FEBRILE NEUTROPENIA
     Route: 041
     Dates: start: 20150128, end: 20150128
  23. OBINUTUZUMAB. [Suspect]
     Active Substance: OBINUTUZUMAB
     Dosage: C4D1
     Route: 041
     Dates: start: 20150428, end: 20150428
  24. OBINUTUZUMAB. [Suspect]
     Active Substance: OBINUTUZUMAB
     Dosage: C6D1
     Route: 041
     Dates: start: 20150623, end: 20150623
  25. CYCLOPHOSPHAMIDE. [Suspect]
     Active Substance: CYCLOPHOSPHAMIDE
     Dosage: C4D1
     Route: 048
     Dates: start: 20150428, end: 20150428
  26. CYCLOPHOSPHAMIDE. [Suspect]
     Active Substance: CYCLOPHOSPHAMIDE
     Dosage: C4D3
     Route: 048
     Dates: start: 20150430, end: 20150430
  27. CYCLOPHOSPHAMIDE. [Suspect]
     Active Substance: CYCLOPHOSPHAMIDE
     Dosage: C5D1
     Route: 048
     Dates: start: 20150526, end: 20150526
  28. CYCLOPHOSPHAMIDE. [Suspect]
     Active Substance: CYCLOPHOSPHAMIDE
     Dosage: C6D1
     Route: 048
     Dates: start: 20150623, end: 20150623
  29. FLUDARABINE [Suspect]
     Active Substance: FLUDARABINE PHOSPHATE
     Dosage: C2D1
     Route: 048
     Dates: start: 20150224, end: 20150224
  30. SOMAC [Concomitant]
     Active Substance: PANTOPRAZOLE SODIUM
     Indication: GASTROOESOPHAGEAL REFLUX DISEASE
     Route: 048
     Dates: start: 20110819
  31. PARATABS [Concomitant]
     Route: 048
     Dates: start: 20150204, end: 20150204
  32. HISTEC [Concomitant]
     Active Substance: CETIRIZINE HYDROCHLORIDE
     Route: 048
     Dates: start: 20150128, end: 20150128
  33. HISTEC [Concomitant]
     Active Substance: CETIRIZINE HYDROCHLORIDE
     Route: 048
     Dates: start: 20150204, end: 20150204
  34. PANADOL (FINLAND) [Concomitant]
     Indication: PROPHYLAXIS
     Route: 048
     Dates: start: 20150115, end: 20150115
  35. COTRIM FORTE [Concomitant]
     Active Substance: SULFAMETHOXAZOLE\TRIMETHOPRIM
     Indication: PROPHYLAXIS
     Dosage: STRENGTH: 100/80MG
     Route: 048
     Dates: start: 20150114
  36. PENTACARINAT [Concomitant]
     Active Substance: PENTAMIDINE ISETHIONATE
     Indication: PROPHYLAXIS
     Route: 065
     Dates: start: 20170717
  37. OBINUTUZUMAB. [Suspect]
     Active Substance: OBINUTUZUMAB
     Dosage: C1D2?LAST DOSE PRIOR TO SAE
     Route: 041
     Dates: start: 20150115, end: 20150115
  38. CYCLOPHOSPHAMIDE. [Suspect]
     Active Substance: CYCLOPHOSPHAMIDE
     Dosage: C2D2
     Route: 048
     Dates: start: 20150225, end: 20150225
  39. CYCLOPHOSPHAMIDE. [Suspect]
     Active Substance: CYCLOPHOSPHAMIDE
     Dosage: C5D3
     Route: 048
     Dates: start: 20150528, end: 20150528
  40. FLUDARABINE [Suspect]
     Active Substance: FLUDARABINE PHOSPHATE
     Dosage: C3D3
     Route: 048
     Dates: start: 20150402, end: 20150402
  41. FLUDARABINE [Suspect]
     Active Substance: FLUDARABINE PHOSPHATE
     Dosage: C4D2
     Route: 048
     Dates: start: 20150429, end: 20150429
  42. FLUDARABINE [Suspect]
     Active Substance: FLUDARABINE PHOSPHATE
     Dosage: C5D2
     Route: 048
     Dates: start: 20150527, end: 20150527
  43. SOLU-MEDROL [Concomitant]
     Active Substance: METHYLPREDNISOLONE SODIUM SUCCINATE
     Indication: PROPHYLAXIS
     Route: 042
     Dates: start: 20150114, end: 20150114
  44. SOLU-MEDROL [Concomitant]
     Active Substance: METHYLPREDNISOLONE SODIUM SUCCINATE
     Route: 042
     Dates: start: 20150115, end: 20150115
  45. SOLU-MEDROL [Concomitant]
     Active Substance: METHYLPREDNISOLONE SODIUM SUCCINATE
     Route: 042
     Dates: start: 20150224, end: 20150224
  46. PARATABS [Concomitant]
     Indication: PROPHYLAXIS
     Route: 048
     Dates: start: 20150114, end: 20150114
  47. PARATABS [Concomitant]
     Route: 048
     Dates: start: 20150526, end: 20150526
  48. HISTEC [Concomitant]
     Active Substance: CETIRIZINE HYDROCHLORIDE
     Route: 048
     Dates: start: 20150115, end: 20150115
  49. HISTEC [Concomitant]
     Active Substance: CETIRIZINE HYDROCHLORIDE
     Route: 048
     Dates: start: 20150224, end: 20150224
  50. ONDANSETRON [Concomitant]
     Active Substance: ONDANSETRON
     Route: 048
     Dates: start: 20150114, end: 20150331
  51. OBINUTUZUMAB. [Suspect]
     Active Substance: OBINUTUZUMAB
     Dosage: C1D15
     Route: 041
     Dates: start: 20150204, end: 20150204
  52. CYCLOPHOSPHAMIDE. [Suspect]
     Active Substance: CYCLOPHOSPHAMIDE
     Dosage: C2D3?LAST DOSE PRIOR TO NEUTROPENIA THIRD EPISODE.
     Route: 048
     Dates: start: 20150226, end: 20150226
  53. CYCLOPHOSPHAMIDE. [Suspect]
     Active Substance: CYCLOPHOSPHAMIDE
     Dosage: C3D1
     Route: 048
     Dates: start: 20150331, end: 20150331
  54. CYCLOPHOSPHAMIDE. [Suspect]
     Active Substance: CYCLOPHOSPHAMIDE
     Dosage: C6D3, LAST DOSE PRIOR TO FEBRILE NEUTROPENIA (SECOND OCCURENCE) ON 25/JUN/2015
     Route: 048
     Dates: start: 20150625
  55. THYROXIN [Concomitant]
     Active Substance: LEVOTHYROXINE
     Dosage: 5TIMES/WEEK, 0.2MG 2TIMES/WEEK
     Route: 048
     Dates: start: 20150122
  56. SOLU-MEDROL [Concomitant]
     Active Substance: METHYLPREDNISOLONE SODIUM SUCCINATE
     Route: 042
     Dates: start: 20150428, end: 20150428
  57. HISTEC [Concomitant]
     Active Substance: CETIRIZINE HYDROCHLORIDE
     Route: 048
     Dates: start: 20150331, end: 20150331
  58. TAVEGYL [Concomitant]
     Active Substance: CLEMASTINE FUMARATE
     Dosage: FOR TREATMENT OF AE 1.
     Route: 042
     Dates: start: 20150114, end: 20150114
  59. PETIDIN [Concomitant]
     Dosage: FOR TREATMENT OF AE 2.
     Route: 042
     Dates: start: 20150114, end: 20150114
  60. OBINUTUZUMAB. [Suspect]
     Active Substance: OBINUTUZUMAB
     Dosage: C2D1?LAST DOSE PRIOR TO NEUTROPENIA THIRD EPISODE.
     Route: 041
     Dates: start: 20150224, end: 20150224
  61. CYCLOPHOSPHAMIDE. [Suspect]
     Active Substance: CYCLOPHOSPHAMIDE
     Dosage: C1D2
     Route: 048
     Dates: start: 20150115, end: 20150115
  62. CYCLOPHOSPHAMIDE. [Suspect]
     Active Substance: CYCLOPHOSPHAMIDE
     Dosage: C3D3
     Route: 048
     Dates: start: 20150402, end: 20150402
  63. CYCLOPHOSPHAMIDE. [Suspect]
     Active Substance: CYCLOPHOSPHAMIDE
     Dosage: C6D2
     Route: 048
     Dates: start: 20150624, end: 20150624
  64. FLUDARABINE [Suspect]
     Active Substance: FLUDARABINE PHOSPHATE
     Dosage: C2D3?LAST DOSE PRIOR TO NEUTROPENIA 3RD EPISODE.
     Route: 048
     Dates: start: 20150226, end: 20150226
  65. FLUDARABINE [Suspect]
     Active Substance: FLUDARABINE PHOSPHATE
     Dosage: C4D3
     Route: 048
     Dates: start: 20150430, end: 20150430
  66. FLUDARABINE [Suspect]
     Active Substance: FLUDARABINE PHOSPHATE
     Dosage: C6D2
     Route: 048
     Dates: start: 20150624, end: 20150624
  67. FLUDARABINE [Suspect]
     Active Substance: FLUDARABINE PHOSPHATE
     Dosage: C6D3, LAST DOSE PRIOR TO FEBRILE NEUTROPENIA (SECOND OCCURENCE) ON 25/JUN/2015
     Route: 048
     Dates: start: 20150625
  68. THYROXIN [Concomitant]
     Active Substance: LEVOTHYROXINE
     Indication: HYPOTHYROIDISM
     Dosage: 2 TBL TWICE A WEEK, 1 TBL 5 DAYS IN WEEK
     Route: 048
     Dates: start: 20130902
  69. THYROXIN [Concomitant]
     Active Substance: LEVOTHYROXINE
     Route: 065
     Dates: start: 20130711
  70. ONDANSETRON [Concomitant]
     Active Substance: ONDANSETRON
     Indication: PROPHYLAXIS
     Dosage: FOR TREATMENT OF AE 1.
     Route: 042
     Dates: start: 20150114, end: 20150114
  71. PERFALGAN [Concomitant]
     Active Substance: ACETAMINOPHEN
     Dosage: FOR TREATMENT OF AE 2.
     Route: 042
     Dates: start: 20150114, end: 20150114
  72. EMEND [Concomitant]
     Active Substance: APREPITANT
     Dosage: 125+80+80 MG
     Route: 048
     Dates: start: 20150331, end: 20150430
  73. OBINUTUZUMAB. [Suspect]
     Active Substance: OBINUTUZUMAB
     Dosage: C5D1
     Route: 041
     Dates: start: 20150526, end: 20150526
  74. CYCLOPHOSPHAMIDE. [Suspect]
     Active Substance: CYCLOPHOSPHAMIDE
     Dosage: C3D2
     Route: 048
     Dates: start: 20150401, end: 20150401
  75. CYCLOPHOSPHAMIDE. [Suspect]
     Active Substance: CYCLOPHOSPHAMIDE
     Dosage: C4D2
     Route: 048
     Dates: start: 20150429, end: 20150429
  76. CYCLOPHOSPHAMIDE. [Suspect]
     Active Substance: CYCLOPHOSPHAMIDE
     Dosage: C5D2
     Route: 048
     Dates: start: 20150527, end: 20150527
  77. FLUDARABINE [Suspect]
     Active Substance: FLUDARABINE PHOSPHATE
     Dosage: C1D2
     Route: 048
     Dates: start: 20150115, end: 20150115
  78. FLUDARABINE [Suspect]
     Active Substance: FLUDARABINE PHOSPHATE
     Dosage: C6D1
     Route: 048
     Dates: start: 20150623, end: 20150623
  79. SOLU-MEDROL [Concomitant]
     Active Substance: METHYLPREDNISOLONE SODIUM SUCCINATE
     Route: 042
     Dates: start: 20150331, end: 20150331
  80. SOLU-MEDROL [Concomitant]
     Active Substance: METHYLPREDNISOLONE SODIUM SUCCINATE
     Route: 042
     Dates: start: 20150526, end: 20150526
  81. SOLU-MEDROL [Concomitant]
     Active Substance: METHYLPREDNISOLONE SODIUM SUCCINATE
     Route: 042
     Dates: start: 20150623, end: 20150623
  82. PARATABS [Concomitant]
     Route: 048
     Dates: start: 20150224, end: 20150224
  83. PARATABS [Concomitant]
     Route: 048
     Dates: start: 20150331, end: 20150331
  84. HISTEC [Concomitant]
     Active Substance: CETIRIZINE HYDROCHLORIDE
     Indication: PROPHYLAXIS
     Route: 048
     Dates: start: 20150114, end: 20150114
  85. HISTEC [Concomitant]
     Active Substance: CETIRIZINE HYDROCHLORIDE
     Route: 048
     Dates: start: 20150526, end: 20150526
  86. COTRIM FORTE [Concomitant]
     Active Substance: SULFAMETHOXAZOLE\TRIMETHOPRIM
     Dosage: 160/800MG
     Route: 065
     Dates: start: 20140901
  87. APURIN [Concomitant]
     Active Substance: ALLOPURINOL
     Indication: PROPHYLAXIS
     Route: 048
     Dates: start: 20141213
  88. DEXAMETASON [Concomitant]
     Active Substance: DEXAMETHASONE
     Indication: PROPHYLAXIS
     Dosage: 12+9+9 MG?WITH EMEND
     Route: 048
     Dates: start: 20150331
  89. KALEORID [Concomitant]
     Active Substance: POTASSIUM CHLORIDE
     Route: 065
     Dates: start: 20161004
  90. CYCLOPHOSPHAMIDE. [Suspect]
     Active Substance: CYCLOPHOSPHAMIDE
     Dosage: C2D1
     Route: 048
     Dates: start: 20150224, end: 20150224
  91. FLUDARABINE [Suspect]
     Active Substance: FLUDARABINE PHOSPHATE
     Dosage: C3D1
     Route: 048
     Dates: start: 20150331, end: 20150331
  92. FLUDARABINE [Suspect]
     Active Substance: FLUDARABINE PHOSPHATE
     Dosage: C3D2
     Route: 048
     Dates: start: 20150401, end: 20150401
  93. FLUDARABINE [Suspect]
     Active Substance: FLUDARABINE PHOSPHATE
     Dosage: C5D1
     Route: 048
     Dates: start: 20150526, end: 20150526
  94. FLUDARABINE [Suspect]
     Active Substance: FLUDARABINE PHOSPHATE
     Dosage: C5D3
     Route: 048
     Dates: start: 20150528, end: 20150528
  95. BURANA [Concomitant]
     Active Substance: IBUPROFEN
     Indication: PROPHYLAXIS
     Route: 048
     Dates: start: 20150107
  96. ZOFRAN [Concomitant]
     Active Substance: ONDANSETRON HYDROCHLORIDE
     Indication: PROPHYLAXIS
     Route: 048
     Dates: start: 20150114, end: 20150114

REACTIONS (3)
  - Febrile neutropenia [Recovered/Resolved]
  - Neutropenia [Recovered/Resolved]
  - Febrile neutropenia [Recovered/Resolved]

NARRATIVE: CASE EVENT DATE: 20150120
